FAERS Safety Report 6218856-9 (Version None)
Quarter: 2009Q2

REPORT INFORMATION
  Report Type: 
  Country: None (occurrence: None)
  Receive Date: 20090605
  Receipt Date: 20090525
  Transmission Date: 20091009
  Serious: Yes (Hospitalization)
  Sender: FDA-Public Use
  Company Number: US-GENENTECH-203015

PATIENT
  Age: 37 Year
  Sex: Female

DRUGS (12)
  1. TRASTUZUMAB [Suspect]
     Indication: BREAST CANCER
     Dosage: 4 MG/KG, SINGLE
     Route: 042
     Dates: start: 20021205, end: 20021205
  2. TRASTUZUMAB [Suspect]
     Dosage: 101 MG, 1/WEEK
     Dates: start: 20021201
  3. DOCETAXEL [Suspect]
     Indication: BREAST CANCER
     Dosage: 113 MG, Q3W
     Route: 042
     Dates: start: 20021205
  4. CARBOPLATIN [Suspect]
     Indication: BREAST CANCER
     Dosage: 790 MG, Q3W
     Route: 042
     Dates: start: 20021205
  5. DEXAMETHASONE [Concomitant]
     Indication: PROPHYLAXIS
     Dosage: 8 MG, UNK
     Route: 048
     Dates: start: 20030402, end: 20030402
  6. DEXAMETHASONE [Concomitant]
     Dosage: 16 MG, UNK
     Route: 048
     Dates: start: 20030402, end: 20030404
  7. DEXAMETHASONE [Concomitant]
     Dosage: 8 MG, UNK
     Route: 042
     Dates: start: 20030403, end: 20030409
  8. ONDANSETRON [Concomitant]
     Indication: VOMITING
     Dosage: 8 MG, UNK
     Route: 042
     Dates: start: 20030403, end: 20030403
  9. ONDANSETRON [Concomitant]
     Dosage: 8 MG, UNK
     Route: 048
     Dates: start: 20030403, end: 20030403
  10. CLEMASTINE FUMARATE [Concomitant]
     Indication: PROPHYLAXIS
     Dosage: 2 MG, UNK
     Route: 042
     Dates: start: 20030403, end: 20030403
  11. RANITIDINE [Concomitant]
     Indication: VOMITING
     Dosage: 50 MG, UNK
     Route: 042
     Dates: start: 20030403, end: 20030403
  12. LORAZEPAM [Concomitant]
     Indication: PROPHYLAXIS
     Dosage: 1 TABLET, UNK
     Route: 048
     Dates: start: 20030402, end: 20030402

REACTIONS (1)
  - ABSCESS LIMB [None]
